FAERS Safety Report 15233777 (Version 3)
Quarter: 2018Q4

REPORT INFORMATION
  Report Type: Spontaneous
  Country: US (occurrence: US)
  Receive Date: 20180802
  Receipt Date: 20181205
  Transmission Date: 20190204
  Serious: No
  Sender: FDA-Public Use
  Company Number: US-GLAXOSMITHKLINE-US2018131452

PATIENT
  Age: 77 Year
  Sex: Female
  Weight: 108 kg

DRUGS (3)
  1. VENTOLIN HFA [Suspect]
     Active Substance: ALBUTEROL SULFATE
     Indication: PRODUCT USED FOR UNKNOWN INDICATION
     Dosage: 2 PUFF(S), QID
  2. ANORO ELLIPTA [Suspect]
     Active Substance: UMECLIDINIUM BROMIDE\VILANTEROL TRIFENATATE
     Indication: INTERSTITIAL LUNG DISEASE
     Dosage: 1 PUFF(S), QD
     Dates: start: 201805
  3. VALIUM [Concomitant]
     Active Substance: DIAZEPAM

REACTIONS (13)
  - Alopecia [Not Recovered/Not Resolved]
  - Neck pain [Not Recovered/Not Resolved]
  - Dysphonia [Not Recovered/Not Resolved]
  - Hypertension [Recovering/Resolving]
  - Acne [Not Recovered/Not Resolved]
  - Skin ulcer [Not Recovered/Not Resolved]
  - Musculoskeletal stiffness [Not Recovered/Not Resolved]
  - Pain of skin [Not Recovered/Not Resolved]
  - Product use in unapproved indication [Unknown]
  - Product dose omission [Unknown]
  - Arthralgia [Not Recovered/Not Resolved]
  - Condition aggravated [Unknown]
  - Muscle spasms [Not Recovered/Not Resolved]

NARRATIVE: CASE EVENT DATE: 201806
